FAERS Safety Report 17669864 (Version 2)
Quarter: 2020Q2

REPORT INFORMATION
  Report Type: Spontaneous
  Country: US (occurrence: US)
  Receive Date: 20200415
  Receipt Date: 20200422
  Transmission Date: 20200713
  Serious: Yes (Other)
  Sender: FDA-Public Use
  Company Number: US-PFIZER INC-2020154973

PATIENT
  Age: 58 Year
  Sex: Male

DRUGS (1)
  1. DILANTIN [Suspect]
     Active Substance: PHENYTOIN
     Dosage: 7 DF, 1X/DAY (AT BEDTIME)

REACTIONS (2)
  - Epilepsy [Unknown]
  - Prescribed overdose [Unknown]
